FAERS Safety Report 20410392 (Version 1)
Quarter: 2022Q1

REPORT INFORMATION
  Report Type: Spontaneous
  Country: US (occurrence: US)
  Receive Date: 20220201
  Receipt Date: 20220201
  Transmission Date: 20220424
  Serious: No
  Sender: FDA-Public Use
  Company Number: US-JNJFOC-20220141852

PATIENT
  Sex: Male

DRUGS (3)
  1. INVEGA TRINZA [Interacting]
     Active Substance: PALIPERIDONE PALMITATE
     Indication: Product used for unknown indication
     Route: 030
  2. INVEGA TRINZA [Interacting]
     Active Substance: PALIPERIDONE PALMITATE
  3. INVEGA TRINZA [Interacting]
     Active Substance: PALIPERIDONE PALMITATE

REACTIONS (1)
  - Drug interaction [Unknown]

NARRATIVE: CASE EVENT DATE: 20220119
